FAERS Safety Report 7426932-8 (Version None)
Quarter: 2011Q2

REPORT INFORMATION
  Report Type: 
  Country: None (occurrence: None)
  Receive Date: 20110420
  Receipt Date: 20110413
  Transmission Date: 20111010
  Serious: Yes (Hospitalization, Other)
  Sender: FDA-Public Use
  Company Number: DE-PFIZER INC-2007043372

PATIENT
  Age: 71 Year
  Sex: Female
  Weight: 75 kg

DRUGS (11)
  1. IODINE [Concomitant]
  2. OMEPRAZOLE MAGNESIUM [Concomitant]
  3. RAMIPRIL [Concomitant]
  4. LINEZOLID SOLUTION, STERILE [Suspect]
     Indication: DEVICE RELATED INFECTION
     Dosage: 600 MG, 2X/DAY
     Route: 042
     Dates: start: 20050721, end: 20050731
  5. RIFAMPICIN [Concomitant]
     Indication: DEVICE RELATED INFECTION
     Dosage: 600 MG, 1X/DAY
     Route: 042
     Dates: start: 20050721, end: 20050819
  6. HYDROCHLOROTHIAZIDE [Concomitant]
  7. TORSEMIDE [Concomitant]
  8. METAMIZOLE [Concomitant]
  9. METOPROLOL [Concomitant]
  10. NADROPARIN CALCIUM [Concomitant]
  11. ALLOPURINOL [Concomitant]

REACTIONS (3)
  - PARTIAL SEIZURES [None]
  - VISUAL IMPAIRMENT [None]
  - POSTERIOR REVERSIBLE ENCEPHALOPATHY SYNDROME [None]
